FAERS Safety Report 6133571-8 (Version None)
Quarter: 2009Q1

REPORT INFORMATION
  Report Type: 
  Country: None (occurrence: None)
  Receive Date: 20090326
  Receipt Date: 20090317
  Transmission Date: 20090719
  Serious: Yes (Hospitalization, Other)
  Sender: FDA-Public Use
  Company Number: DE-CELGENEUS-062-C5013-09030314

PATIENT
  Sex: Male

DRUGS (5)
  1. CC-5013 [Suspect]
     Route: 048
     Dates: start: 20090302
  2. CYCLOSPORINE [Concomitant]
     Indication: IMMUNOSUPPRESSION
     Route: 048
     Dates: start: 20020517
  3. FRAXIPARIN [Concomitant]
     Indication: PROPHYLAXIS
     Route: 048
     Dates: start: 20090203
  4. DELIX [Concomitant]
     Indication: HYPERTENSION
     Route: 048
     Dates: start: 20020601
  5. HYDROCHLOROTHIAZIDE [Concomitant]
     Indication: HYPERTENSION
     Route: 048
     Dates: start: 20020601

REACTIONS (1)
  - TUMOUR FLARE [None]
